FAERS Safety Report 11120555 (Version 1)
Quarter: 2015Q2

REPORT INFORMATION
  Report Type: Spontaneous
  Country: AU (occurrence: AU)
  Receive Date: 20150519
  Receipt Date: 20150519
  Transmission Date: 20150821
  Serious: Yes (Hospitalization, Other)
  Sender: FDA-Public Use
  Company Number: AU-ABBVIE-15K-008-1390286-00

PATIENT
  Age: 50 Year
  Sex: Female
  Weight: 76 kg

DRUGS (1)
  1. HUMIRA [Suspect]
     Active Substance: ADALIMUMAB
     Indication: PRODUCT USED FOR UNKNOWN INDICATION
     Route: 058
     Dates: start: 20141012, end: 20141023

REACTIONS (6)
  - Hypersensitivity [Not Recovered/Not Resolved]
  - Insomnia [Unknown]
  - Headache [Unknown]
  - Fatigue [Unknown]
  - Rash generalised [Not Recovered/Not Resolved]
  - Pruritus [Unknown]

NARRATIVE: CASE EVENT DATE: 20141024
